FAERS Safety Report 5533818-2 (Version None)
Quarter: 2007Q4

REPORT INFORMATION
  Report Type: 
  Country: None (occurrence: None)
  Receive Date: 20071129
  Receipt Date: 20071102
  Transmission Date: 20080405
  Serious: No
  Sender: FDA-Public Use
  Company Number: 8028174

PATIENT
  Sex: Male

DRUGS (1)
  1. EQUASYM [Suspect]

REACTIONS (2)
  - EYE DISORDER [None]
  - TIC [None]
